FAERS Safety Report 13189115 (Version 3)
Quarter: 2017Q2

REPORT INFORMATION
  Report Type: Report from Study
  Country: IT (occurrence: IT)
  Receive Date: 20170206
  Receipt Date: 20170523
  Transmission Date: 20170830
  Serious: Yes (Life-Threatening, Hospitalization, Disabling, Other)
  Sender: FDA-Public Use
  Company Number: IT-CELGENEUS-ITA-2017017440

PATIENT
  Age: 76 Year
  Sex: Female
  Weight: 50 kg

DRUGS (7)
  1. OMEPRAZOLE. [Concomitant]
     Active Substance: OMEPRAZOLE
     Indication: CHRONIC GASTRITIS
     Route: 065
  2. CLOREXIDINA [Concomitant]
     Indication: STOMATITIS
     Dosage: MOUTH WASH
     Route: 048
     Dates: start: 201609
  3. ENOXAPARIN [Concomitant]
     Active Substance: ENOXAPARIN
     Indication: THROMBOPHLEBITIS SUPERFICIAL
     Route: 065
     Dates: start: 20150121
  4. HEPARIN [Concomitant]
     Active Substance: HEPARIN SODIUM
     Indication: THROMBOPHLEBITIS
     Dosage: 4000 U
     Route: 058
     Dates: start: 201501, end: 201611
  5. REVLIMID [Suspect]
     Active Substance: LENALIDOMIDE
     Indication: MYELODYSPLASTIC SYNDROME
     Dosage: 3.75 MILLIGRAM
     Route: 048
     Dates: start: 20150109, end: 20170110
  6. AMITRIPTILINA [Concomitant]
     Active Substance: AMITRIPTYLINE HYDROCHLORIDE
     Indication: CHRONIC GASTRITIS
     Route: 065
  7. ENOXAPARIN [Concomitant]
     Active Substance: ENOXAPARIN
     Indication: PROPHYLAXIS
     Route: 065
     Dates: start: 20150225

REACTIONS (1)
  - Arterial thrombosis [Recovered/Resolved]

NARRATIVE: CASE EVENT DATE: 20170110
